FAERS Safety Report 12510690 (Version 3)
Quarter: 2016Q3

REPORT INFORMATION
  Report Type: Spontaneous
  Country: NO (occurrence: NO)
  Receive Date: 20160629
  Receipt Date: 20160831
  Transmission Date: 20161109
  Serious: Yes (Death, Life-Threatening, Hospitalization, Other)
  Sender: FDA-Public Use
  Company Number: NO-TEVA-670110ACC

PATIENT
  Age: 69 Year
  Sex: Male

DRUGS (5)
  1. HYDROCHLOROTHIAZIDE. [Concomitant]
     Active Substance: HYDROCHLOROTHIAZIDE
     Indication: HYPERTENSION
     Dosage: UNK
     Route: 048
  2. TEMOZOLOMIDE. [Suspect]
     Active Substance: TEMOZOLOMIDE
     Indication: GLIOBLASTOMA MULTIFORME
     Dosage: 160 MILLIGRAM DAILY; TMZ DOSE OF 160 MG DAILY, BASED ON A BODY SURFACE AREA OF 2.1 M2
     Route: 048
     Dates: start: 20150105, end: 20150128
  3. ENALAPRIL [Concomitant]
     Active Substance: ENALAPRIL
     Dosage: UNK
     Route: 048
  4. LANZOPRAZOL [Concomitant]
     Active Substance: LANSOPRAZOLE
     Indication: GASTROOESOPHAGEAL REFLUX DISEASE
     Dosage: UNK
  5. TEMOZOLOMIDE. [Suspect]
     Active Substance: TEMOZOLOMIDE
     Indication: CHEMOTHERAPY

REACTIONS (5)
  - Lethargy [Unknown]
  - Bone marrow failure [Unknown]
  - Weight decreased [Unknown]
  - Death [Fatal]
  - Decreased appetite [Unknown]

NARRATIVE: CASE EVENT DATE: 201501
